FAERS Safety Report 21586998 (Version 1)
Quarter: 2022Q4

REPORT INFORMATION
  Report Type: Spontaneous
  Country: US (occurrence: US)
  Receive Date: 20221113
  Receipt Date: 20221113
  Transmission Date: 20230112
  Serious: Yes (Hospitalization, Other)
  Sender: FDA-Public Use
  Company Number: US-PCCINC-2022-PEL-000638

PATIENT

DRUGS (19)
  1. DEXMEDETOMIDINE [Interacting]
     Active Substance: DEXMEDETOMIDINE
     Indication: Sedation
     Dosage: 1.4 MICROGRAM/KILOGRAM/ HOUR, WEAN
     Route: 065
  2. DEXMEDETOMIDINE [Interacting]
     Active Substance: DEXMEDETOMIDINE
     Dosage: CONTINUOUS
     Route: 065
  3. NEOSTIGMINE BROMIDE [Interacting]
     Active Substance: NEOSTIGMINE BROMIDE
     Indication: Sedation
     Dosage: 0.4 MG/HR
     Route: 065
  4. NEOSTIGMINE BROMIDE [Interacting]
     Active Substance: NEOSTIGMINE BROMIDE
     Dosage: 0.4 MG/HR
     Route: 065
  5. OXYCODONE [Suspect]
     Active Substance: OXYCODONE
     Indication: Analgesic therapy
     Dosage: 10 MILLIGRAM EVERY 4 HOURS TO WEAN TOWARD EXTUBATION
     Route: 048
  6. FENTANYL [Suspect]
     Active Substance: FENTANYL
     Indication: Analgesic therapy
     Dosage: CONTINUOUS
     Route: 042
  7. FENTANYL [Suspect]
     Active Substance: FENTANYL
     Indication: Sedation
  8. CLONIDINE [Suspect]
     Active Substance: CLONIDINE
     Indication: Analgesic therapy
     Dosage: 0.1 MILLIGRAM, TID
     Route: 065
  9. CLONIDINE [Suspect]
     Active Substance: CLONIDINE
     Dosage: 0.2 MILLIGRAM, TID
     Route: 065
  10. CLONIDINE [Suspect]
     Active Substance: CLONIDINE
     Dosage: 0.1 MILLIGRAM, TID
     Route: 065
  11. PROPOFOL [Suspect]
     Active Substance: PROPOFOL
     Indication: Analgesic therapy
     Dosage: CONTINUOUS
     Route: 042
  12. PROPOFOL [Suspect]
     Active Substance: PROPOFOL
     Indication: Sedation
     Dosage: 30 MICROGRAM/KILOGRAM/MIN
     Route: 042
  13. GABAPENTIN [Concomitant]
     Active Substance: GABAPENTIN
     Indication: Analgesic therapy
     Dosage: 100 MILLIGRAM, TID
     Route: 065
  14. ACETAMINOPHEN [Concomitant]
     Active Substance: ACETAMINOPHEN
     Indication: Analgesic therapy
     Dosage: AS NECESSARY
     Route: 065
  15. SENNA ALEXANDRINA WHOLE [Concomitant]
     Active Substance: SENNA ALEXANDRINA WHOLE
     Indication: Constipation prophylaxis
     Dosage: UNK
     Route: 065
  16. POLYETHYLENE GLYCOL [Concomitant]
     Active Substance: POLYETHYLENE GLYCOL
     Indication: Constipation prophylaxis
     Dosage: UNK
     Route: 065
  17. DOCUSATE [Concomitant]
     Active Substance: DOCUSATE
     Indication: Constipation prophylaxis
     Dosage: UNK
     Route: 065
  18. BISACODYL [Concomitant]
     Active Substance: BISACODYL
     Indication: Constipation prophylaxis
     Dosage: UNK
     Route: 065
  19. METOCLOPRAMIDE                     /00041902/ [Concomitant]
     Indication: Product used for unknown indication
     Dosage: 10 MILLIGRAM EVERY 6 HOURS WAS STARTED
     Route: 042

REACTIONS (3)
  - Intestinal pseudo-obstruction [Recovered/Resolved]
  - Cardiac arrest [Recovered/Resolved]
  - Bradycardia [Recovered/Resolved]
